FAERS Safety Report 16172735 (Version 1)
Quarter: 2019Q2

REPORT INFORMATION
  Report Type: Spontaneous
  Country: DK (occurrence: DK)
  Receive Date: 20190409
  Receipt Date: 20190409
  Transmission Date: 20190711
  Serious: Yes (Other)
  Sender: FDA-Public Use
  Company Number: DK-009507513-1904DNK002198

PATIENT
  Age: 51 Year
  Sex: Male

DRUGS (3)
  1. XYLOCAINE [Suspect]
     Active Substance: LIDOCAINE HYDROCHLORIDE
     Indication: NECK PAIN
     Dosage: 2 ML, UNK
     Dates: start: 20180130
  2. NASONEX [Suspect]
     Active Substance: MOMETASONE FUROATE
     Indication: NASAL POLYPS
     Dosage: STRENGTH: 50 MICROGRAM PER DOSE. DOSE: 2 BLOWS DAILY IN BOTH NOSTRILS
     Route: 045
     Dates: start: 20170405, end: 201901
  3. BETAMETHASONE DIPROPIONATE (+) BETAMETHASONE SODIUM PHOSPHATE [Suspect]
     Active Substance: BETAMETHASONE DIPROPIONATE\BETAMETHASONE SODIUM PHOSPHATE
     Indication: NECK PAIN
     Dosage: STRENGTH: 7 MG/ML
     Dates: start: 20180130

REACTIONS (9)
  - Chorioretinopathy [Unknown]
  - Retinal oedema [Unknown]
  - Eye pain [Unknown]
  - Visual impairment [Unknown]
  - Lacrimation increased [Unknown]
  - Dyschromatopsia [Unknown]
  - Vision blurred [Unknown]
  - Metamorphopsia [Unknown]
  - Ocular hyperaemia [Unknown]

NARRATIVE: CASE EVENT DATE: 201802
